FAERS Safety Report 24180090 (Version 1)
Quarter: 2024Q3

REPORT INFORMATION
  Report Type: Spontaneous
  Country: US (occurrence: US)
  Receive Date: 20240806
  Receipt Date: 20240806
  Transmission Date: 20241016
  Serious: No
  Sender: Tarsus Pharmaceuticals
  Company Number: US-TARSUS PHARMACEUTICALS-TSP-US-2024-000156

PATIENT
  Age: 57 Year
  Sex: Female

DRUGS (1)
  1. XDEMVY [Suspect]
     Active Substance: LOTILANER
     Indication: Demodex blepharitis
     Dosage: 1 DROP, BID (INTO BOTH EYES 12 HOURS APART FOR 6 WEEKS)
     Route: 047
     Dates: start: 20231011

REACTIONS (2)
  - Therapeutic response decreased [Unknown]
  - Product use issue [Unknown]
